FAERS Safety Report 15608512 (Version 1)
Quarter: 2018Q4

REPORT INFORMATION
  Report Type: Spontaneous
  Country: GR (occurrence: GR)
  Receive Date: 20181112
  Receipt Date: 20181112
  Transmission Date: 20190205
  Serious: Yes (Hospitalization, Other)
  Sender: FDA-Public Use
  Company Number: GR-SA-2018SA279185

PATIENT
  Age: 72 Year
  Sex: Male

DRUGS (3)
  1. ENOXAPARIN SODIUM. [Suspect]
     Active Substance: ENOXAPARIN SODIUM
     Indication: HYPOAESTHESIA
  2. ENOXAPARIN SODIUM. [Suspect]
     Active Substance: ENOXAPARIN SODIUM
     Indication: THROMBOSIS
  3. ENOXAPARIN SODIUM. [Suspect]
     Active Substance: ENOXAPARIN SODIUM
     Indication: PAIN IN EXTREMITY
     Dosage: 80 MG, BID

REACTIONS (5)
  - Embolism [Unknown]
  - Aphasia [Recovered/Resolved]
  - Supraventricular tachycardia [Recovered/Resolved]
  - Iron deficiency anaemia [Unknown]
  - Drug ineffective [Unknown]
